FAERS Safety Report 9863511 (Version 1)
Quarter: 2014Q1

REPORT INFORMATION
  Report Type: Spontaneous
  Country: BR (occurrence: BR)
  Receive Date: 20140203
  Receipt Date: 20140203
  Transmission Date: 20141002
  Serious: Yes (Other)
  Sender: FDA-Public Use
  Company Number: BR-PFIZER INC-2014028237

PATIENT
  Age: 52 Year
  Sex: Female

DRUGS (1)
  1. PRISTIQ [Suspect]
     Dosage: 50 MG, UNK
     Dates: start: 2013

REACTIONS (6)
  - Anaemia [Not Recovered/Not Resolved]
  - Feeling abnormal [Unknown]
  - Gastric disorder [Unknown]
  - Headache [Unknown]
  - Nausea [Unknown]
  - Bedridden [Unknown]
